FAERS Safety Report 4717999-6 (Version None)
Quarter: 2005Q3

REPORT INFORMATION
  Report Type: 
  Country: None (occurrence: None)
  Receive Date: 20050719
  Receipt Date: 20050125
  Transmission Date: 20060218
  Serious: Yes (Hospitalization)
  Sender: FDA-Public Use
  Company Number: 2005021928

PATIENT
  Age: 79 Year
  Sex: Female
  Weight: 83.9154 kg

DRUGS (4)
  1. CELEBREX [Suspect]
     Indication: OSTEOARTHRITIS
     Dosage: (1 IN 1 D), ORAL
     Route: 048
     Dates: end: 20040101
  2. ATENOLOL [Concomitant]
  3. THYROID TAB [Concomitant]
  4. ESCITALOPRAM OXALATE [Concomitant]

REACTIONS (1)
  - GASTRIC HAEMORRHAGE [None]
